FAERS Safety Report 7944182 (Version 2)
Quarter: 2020Q3

REPORT INFORMATION
  Report Type: Other
  Country: US (occurrence: US)
  Receive Date: 20110513
  Receipt Date: 20200916
  Transmission Date: 20201103
  Serious: Yes (Hospitalization)
  Sender: FDA-Public Use
  Company Number: US-ROCHE-776223

PATIENT
  Age: 2 Year
  Sex: Male

DRUGS (2)
  1. CEFTRIAXONE. [Suspect]
     Active Substance: CEFTRIAXONE
     Indication: PYREXIA
  2. CEFTRIAXONE. [Suspect]
     Active Substance: CEFTRIAXONE
     Indication: ACUTE CHEST SYNDROME
     Route: 065

REACTIONS (4)
  - Drug specific antibody present [Unknown]
  - Loss of consciousness [Recovered/Resolved]
  - Acidosis [Recovered/Resolved]
  - Haemolysis [Recovered/Resolved]
